FAERS Safety Report 5088252-9 (Version None)
Quarter: 2006Q3

REPORT INFORMATION
  Report Type: 
  Country: None (occurrence: None)
  Receive Date: 20060823
  Receipt Date: 20060823
  Transmission Date: 20061208
  Serious: Yes (Other)
  Sender: FDA-Public Use
  Company Number: None

PATIENT
  Sex: Male
  Weight: 94.8018 kg

DRUGS (8)
  1. LOZOL [Suspect]
     Indication: HYPERTENSION
     Dosage: 2.5MG  ONCE DAILY  ORAL
     Route: 048
     Dates: start: 20060501, end: 20060720
  2. CHLORTHALIDONE [Concomitant]
  3. KLOR-CON [Concomitant]
  4. NORVASC [Concomitant]
  5. ATACAND [Concomitant]
  6. ADVAIR DISKUS 100/50 [Concomitant]
  7. ALBUTEROL [Concomitant]
  8. PRILOSEC [Concomitant]

REACTIONS (4)
  - BLOOD PRESSURE INCREASED [None]
  - HEADACHE [None]
  - MUSCULAR WEAKNESS [None]
  - NAUSEA [None]
